FAERS Safety Report 7463196-3 (Version None)
Quarter: 2011Q2

REPORT INFORMATION
  Report Type: 
  Country: None (occurrence: None)
  Receive Date: 20110506
  Receipt Date: 20110504
  Transmission Date: 20111010
  Serious: Yes (Hospitalization)
  Sender: FDA-Public Use
  Company Number: US-AMGEN-USACT2011023393

PATIENT
  Age: 24 Year
  Sex: Female

DRUGS (3)
  1. PACLITAXEL [Concomitant]
     Dosage: UNK
     Dates: start: 20110419
  2. CARBOPLATIN [Concomitant]
     Dosage: UNK
     Dates: start: 20110419
  3. VECTIBIX [Suspect]
     Indication: BREAST CANCER
     Dosage: UNK
     Dates: start: 20110419

REACTIONS (1)
  - FEBRILE NEUTROPENIA [None]
